FAERS Safety Report 10179721 (Version 3)
Quarter: 2014Q4

REPORT INFORMATION
  Report Type: Spontaneous
  Country: US (occurrence: US)
  Receive Date: 20140519
  Receipt Date: 20141205
  Transmission Date: 20150528
  Serious: No
  Sender: FDA-Public Use
  Company Number: US-BRISTOL-MYERS SQUIBB COMPANY-20534590

PATIENT
  Age: 56 Year
  Sex: Male
  Weight: 75 kg

DRUGS (8)
  1. NORVIR [Concomitant]
     Active Substance: RITONAVIR
     Indication: HIV INFECTION
  2. ZERIT [Concomitant]
     Active Substance: STAVUDINE
     Indication: HIV INFECTION
  3. EPIVIR [Concomitant]
     Active Substance: LAMIVUDINE
     Indication: HIV INFECTION
  4. AMIKACIN [Concomitant]
     Active Substance: AMIKACIN
  5. LEXIVA [Concomitant]
     Active Substance: FOSAMPRENAVIR CALCIUM
     Indication: HIV INFECTION
  6. BARACLUDE [Suspect]
     Active Substance: ENTECAVIR
     Indication: HEPATITIS B
     Dosage: STARTED 3.5-4 YEARS AGO. 20ML DAILY AT 8AM?EXPIRATION DATE MAR2016 FOR 141381735C
     Route: 048
  7. ETHAMBUTOL [Concomitant]
     Active Substance: ETHAMBUTOL HYDROCHLORIDE
  8. AZITHROMYCIN [Concomitant]
     Active Substance: AZITHROMYCIN ANHYDROUS

REACTIONS (17)
  - Eye swelling [Unknown]
  - Lethargy [Unknown]
  - Malaise [Unknown]
  - Sciatica [Not Recovered/Not Resolved]
  - Paraesthesia [Unknown]
  - Dyspnoea [Unknown]
  - Eyelid ptosis [Unknown]
  - Hypoacusis [Unknown]
  - Fatigue [Unknown]
  - Headache [Unknown]
  - Dizziness [Unknown]
  - Insomnia [Unknown]
  - Pruritus [Not Recovered/Not Resolved]
  - Palpitations [Unknown]
  - Abdominal distension [Unknown]
  - Rash [Unknown]
  - Localised infection [Unknown]

NARRATIVE: CASE EVENT DATE: 20140122
